FAERS Safety Report 5742290-9 (Version None)
Quarter: 2008Q2

REPORT INFORMATION
  Report Type: 
  Country: None (occurrence: None)
  Receive Date: 20080514
  Receipt Date: 20080514
  Transmission Date: 20081010
  Serious: Yes (Other)
  Sender: FDA-Public Use
  Company Number: None

PATIENT
  Age: 50 Year
  Sex: Male
  Weight: 88.4514 kg

DRUGS (1)
  1. DIGITEK 0.25 MG MYLAN BERTEK [Suspect]
     Indication: CARDIAC FAILURE
     Dosage: .25 MG ONCE A DAY PO
     Route: 048
     Dates: start: 20080326, end: 20080513

REACTIONS (11)
  - CARDIAC DISORDER [None]
  - DIZZINESS [None]
  - HEADACHE [None]
  - HEART RATE ABNORMAL [None]
  - MALAISE [None]
  - NAUSEA [None]
  - NECK PAIN [None]
  - PALPITATIONS [None]
  - PHARMACEUTICAL PRODUCT COMPLAINT [None]
  - THERAPEUTIC AGENT TOXICITY [None]
  - VOMITING [None]
